FAERS Safety Report 16878069 (Version 1)
Quarter: 2019Q4

REPORT INFORMATION
  Report Type: Spontaneous
  Country: ES (occurrence: ES)
  Receive Date: 20191002
  Receipt Date: 20191002
  Transmission Date: 20200122
  Serious: Yes (Other)
  Sender: FDA-Public Use
  Company Number: ES-EISAI MEDICAL RESEARCH-EC-2019-062908

PATIENT
  Age: 62 Year
  Sex: Male
  Weight: 91.5 kg

DRUGS (1)
  1. FYCOMPA [Suspect]
     Active Substance: PERAMPANEL
     Indication: ESSENTIAL TREMOR
     Route: 048
     Dates: start: 20190320, end: 2019

REACTIONS (1)
  - Sexual dysfunction [Recovered/Resolved]

NARRATIVE: CASE EVENT DATE: 201903
